FAERS Safety Report 16566346 (Version 1)
Quarter: 2019Q3

REPORT INFORMATION
  Report Type: Spontaneous
  Country: US (occurrence: US)
  Receive Date: 20190712
  Receipt Date: 20190712
  Transmission Date: 20191004
  Serious: Yes (Other)
  Sender: FDA-Public Use
  Company Number: US-AMREGENT-20191410

PATIENT
  Sex: Female

DRUGS (1)
  1. INJECTAFER [Suspect]
     Active Substance: FERRIC CARBOXYMALTOSE
     Dosage: 750 MG IN 100 ML NS
     Route: 042
     Dates: start: 2019, end: 2019

REACTIONS (4)
  - Loss of consciousness [Unknown]
  - Flushing [Unknown]
  - Hypertension [Unknown]
  - Urticaria [Unknown]

NARRATIVE: CASE EVENT DATE: 2019
